FAERS Safety Report 9165232 (Version 2)
Quarter: 2013Q2

REPORT INFORMATION
  Report Type: Spontaneous
  Country: US (occurrence: US)
  Receive Date: 20130315
  Receipt Date: 20130510
  Transmission Date: 20140414
  Serious: Yes (Hospitalization, Other)
  Sender: FDA-Public Use
  Company Number: US-ELI_LILLY_AND_COMPANY-US201303002245

PATIENT
  Age: 59 Year
  Sex: Female

DRUGS (3)
  1. FORTEO [Suspect]
     Indication: OSTEOPOROSIS
     Dosage: 20 UG, QD
     Dates: start: 201112
  2. FORTEO [Suspect]
     Dosage: 20 UG, QD
  3. PLAVIX [Concomitant]
     Dosage: UNK, QD

REACTIONS (3)
  - Myocardial infarction [Unknown]
  - Transient ischaemic attack [Unknown]
  - Incorrect drug administration duration [Unknown]
